FAERS Safety Report 5574440-1 (Version None)
Quarter: 2007Q4

REPORT INFORMATION
  Report Type: 
  Country: None (occurrence: None)
  Receive Date: 20071226
  Receipt Date: 20071226
  Transmission Date: 20080405
  Serious: No
  Sender: FDA-Public Use
  Company Number: None

PATIENT
  Age: 63 Year
  Sex: Male

DRUGS (1)
  1. VARENICLINE [Suspect]
     Indication: SMOKING CESSATION THERAPY
     Dosage: 1MG BID PO
     Route: 048
     Dates: start: 20070706, end: 20070910

REACTIONS (2)
  - HALLUCINATION [None]
  - NIGHTMARE [None]
